FAERS Safety Report 13549769 (Version 1)
Quarter: 2017Q2

REPORT INFORMATION
  Report Type: Spontaneous
  Country: US (occurrence: US)
  Receive Date: 20170516
  Receipt Date: 20170516
  Transmission Date: 20170830
  Serious: Yes (Hospitalization)
  Sender: FDA-Public Use
  Company Number: US-STRIDES ARCOLAB LIMITED-2017SP007467

PATIENT

DRUGS (11)
  1. RITONAVIR. [Suspect]
     Active Substance: RITONAVIR
     Indication: PERINATAL HIV INFECTION
     Dosage: UNKNOWN
     Route: 065
  2. DIDANOSINE. [Suspect]
     Active Substance: DIDANOSINE
     Indication: PERINATAL HIV INFECTION
     Dosage: UNKNOWN
     Route: 065
  3. LAMIVUDINE. [Suspect]
     Active Substance: LAMIVUDINE
     Indication: PERINATAL HIV INFECTION
     Dosage: UNKNOWN
     Route: 065
  4. ZIDOVUDINE. [Suspect]
     Active Substance: ZIDOVUDINE
     Indication: PERINATAL HIV INFECTION
     Dosage: UNKNOWN
     Route: 065
  5. LOPINAVIR [Suspect]
     Active Substance: LOPINAVIR
     Indication: PERINATAL HIV INFECTION
     Dosage: UNKNOWN
     Route: 065
  6. EMTRICITABINE [Suspect]
     Active Substance: EMTRICITABINE
     Indication: PERINATAL HIV INFECTION
     Dosage: UNKNOWN
     Route: 065
  7. ABACAVIR. [Suspect]
     Active Substance: ABACAVIR
     Indication: PERINATAL HIV INFECTION
     Dosage: UNKNOWN
     Route: 065
  8. STAVUDINE. [Suspect]
     Active Substance: STAVUDINE
     Indication: PERINATAL HIV INFECTION
     Dosage: UNKNOWN
     Route: 065
  9. EFAVIRENZ [Suspect]
     Active Substance: EFAVIRENZ
     Indication: PERINATAL HIV INFECTION
     Dosage: UNKNOWN
     Route: 065
  10. NELFINAVIR [Suspect]
     Active Substance: NELFINAVIR
     Indication: PERINATAL HIV INFECTION
     Dosage: UNKNOWN
     Route: 065
  11. ATAZANAVIR [Suspect]
     Active Substance: ATAZANAVIR
     Indication: PERINATAL HIV INFECTION
     Dosage: UNKNOWN
     Route: 065

REACTIONS (5)
  - Acute myocardial infarction [Recovered/Resolved]
  - Chest pain [Unknown]
  - Arteriosclerosis [Unknown]
  - Hyperhidrosis [Unknown]
  - Discomfort [Unknown]
